FAERS Safety Report 6746380-3 (Version None)
Quarter: 2010Q2

REPORT INFORMATION
  Report Type: 
  Country: None (occurrence: None)
  Receive Date: 20100528
  Receipt Date: 20100519
  Transmission Date: 20101027
  Serious: Yes (Hospitalization)
  Sender: FDA-Public Use
  Company Number: DE-ROCHE-692767

PATIENT
  Sex: Female
  Weight: 70.5 kg

DRUGS (11)
  1. HERCEPTIN [Suspect]
     Dosage: TCH SCHEME, LOADING DOSE ON FIRST DAY
     Route: 042
     Dates: start: 20090720, end: 20091123
  2. HERCEPTIN [Suspect]
     Dosage: MONOTHERAPY, LAST DOSE PRIOR TO EVENTS ON 15 FEB 2010
     Route: 042
     Dates: start: 20091124, end: 20100328
  3. HERCEPTIN [Suspect]
     Route: 042
     Dates: start: 20100329
  4. DOCETAXEL [Concomitant]
     Dosage: TCH SCHEME
     Dates: start: 20090720
  5. CARBOPLATIN [Concomitant]
     Dosage: TCH SCHEME
     Dates: start: 20090720
  6. FEMARA [Concomitant]
     Route: 048
     Dates: start: 20091124
  7. COAPROVEL [Concomitant]
     Indication: HYPERTENSION
     Route: 048
  8. AMLODIPINE [Concomitant]
     Indication: HYPERTENSION
     Route: 048
  9. BISOPROLOL [Concomitant]
     Indication: HYPERTENSION
     Route: 048
  10. PREDNISOLONE [Concomitant]
     Indication: PULMONARY SARCOIDOSIS
     Route: 048
  11. ASPIRIN [Concomitant]

REACTIONS (2)
  - AUTOIMMUNE THYROIDITIS [None]
  - THYROTOXIC CRISIS [None]
